FAERS Safety Report 8997480 (Version 1)
Quarter: 2013Q1

REPORT INFORMATION
  Report Type: Spontaneous
  Country: US (occurrence: US)
  Receive Date: 20130104
  Receipt Date: 20130104
  Transmission Date: 20140127
  Serious: No
  Sender: FDA-Public Use
  Company Number: US-TEVA-379025USA

PATIENT
  Age: 79 Year
  Sex: Female

DRUGS (6)
  1. TREANDA [Suspect]
     Indication: PLASMA CELL MYELOMA
     Route: 042
     Dates: start: 201204, end: 201210
  2. DEXAMETHASONE [Suspect]
     Indication: PLASMA CELL MYELOMA
     Dates: start: 201204
  3. VELCADE [Suspect]
     Indication: PLASMA CELL MYELOMA
     Route: 042
  4. CALCIUM CARBONATE [Concomitant]
  5. VITAMIN B [Concomitant]
     Indication: PROPHYLAXIS
     Dates: start: 201204
  6. CARNITINE [Concomitant]
     Indication: PROPHYLAXIS
     Dates: start: 201204

REACTIONS (1)
  - Neuropathy peripheral [Recovering/Resolving]
